FAERS Safety Report 15504151 (Version 1)
Quarter: 2018Q4

REPORT INFORMATION
  Report Type: Report from Study
  Country: US (occurrence: US)
  Receive Date: 20181016
  Receipt Date: 20181016
  Transmission Date: 20190205
  Serious: No
  Sender: FDA-Public Use
  Company Number: US-AMGEN INC.-USASL2018116589

PATIENT
  Age: 65 Year
  Sex: Female

DRUGS (2)
  1. AIMOVIG [Suspect]
     Active Substance: ERENUMAB-AOOE
     Indication: PRODUCT USED FOR UNKNOWN INDICATION
     Dosage: 140 MG, QMO
     Route: 065
     Dates: start: 20180614
  2. FIORINAL [Concomitant]
     Active Substance: ASPIRIN\BUTALBITAL\CAFFEINE
     Indication: MIGRAINE
     Dosage: UNK

REACTIONS (3)
  - Migraine [Unknown]
  - Wrong technique in product usage process [Unknown]
  - Product storage error [Unknown]

NARRATIVE: CASE EVENT DATE: 2018
